FAERS Safety Report 7361188-6 (Version None)
Quarter: 2011Q1

REPORT INFORMATION
  Report Type: 
  Country: None (occurrence: None)
  Receive Date: 20110318
  Receipt Date: 20110303
  Transmission Date: 20110831
  Serious: Yes (Hospitalization)
  Sender: FDA-Public Use
  Company Number: PHHY2011US17587

PATIENT
  Sex: Male
  Weight: 101.59 kg

DRUGS (1)
  1. EXJADE [Suspect]
     Indication: MYELODYSPLASTIC SYNDROME
     Dosage: 1500 MG, QD
     Route: 048

REACTIONS (2)
  - FULL BLOOD COUNT DECREASED [None]
  - MYOCARDIAL INFARCTION [None]
